FAERS Safety Report 10752008 (Version 2)
Quarter: 2015Q3

REPORT INFORMATION
  Report Type: Report from Study
  Country: NL (occurrence: NL)
  Receive Date: 20150130
  Receipt Date: 20150826
  Transmission Date: 20151125
  Serious: Yes (Hospitalization)
  Sender: FDA-Public Use
  Company Number: NL-ABBVIE-15P-114-1338807-00

PATIENT
  Age: 66 Year
  Sex: Male
  Weight: 68.5 kg

DRUGS (1)
  1. DUODOPA [Suspect]
     Active Substance: CARBIDOPA\LEVODOPA
     Indication: PARKINSON^S DISEASE
     Dosage: MORNING DOSE: 8,5 CONTINUOUS DOSE: 3.8 EXTRA DOSE 2,9 NIGHT DOSE: NO NIGHT DOSE
     Route: 050
     Dates: start: 20120927

REACTIONS (5)
  - Urinary tract infection [Recovered/Resolved]
  - Renal impairment [Recovered/Resolved]
  - Respiratory disorder [Recovered/Resolved]
  - Pain in extremity [Recovered/Resolved]
  - Psychomotor hyperactivity [Recovered/Resolved]

NARRATIVE: CASE EVENT DATE: 20150112
